FAERS Safety Report 16854282 (Version 1)
Quarter: 2019Q3

REPORT INFORMATION
  Report Type: Spontaneous
  Country: US (occurrence: US)
  Receive Date: 20190926
  Receipt Date: 20190926
  Transmission Date: 20191005
  Serious: No
  Sender: FDA-Public Use
  Company Number: US-BION-007715

PATIENT
  Age: 69 Year
  Sex: Male

DRUGS (13)
  1. TORASEMIDE [Concomitant]
     Active Substance: TORSEMIDE
  2. METFORMIN [Concomitant]
     Active Substance: METFORMIN HYDROCHLORIDE
     Dosage: TWICE A DAY
  3. PRAVASTATIN. [Concomitant]
     Active Substance: PRAVASTATIN
  4. GLIPIZIDE. [Concomitant]
     Active Substance: GLIPIZIDE
  5. ISOSORBIDE. [Concomitant]
     Active Substance: ISOSORBIDE
  6. IMODIUM A-D [Suspect]
     Active Substance: LOPERAMIDE HYDROCHLORIDE
     Indication: DIARRHOEA
     Route: 048
     Dates: start: 20181228
  7. AMLODIPINE [Concomitant]
     Active Substance: AMLODIPINE BESYLATE
  8. RIVAROXABAN [Concomitant]
     Active Substance: RIVAROXABAN
  9. OMEPRAZOLE. [Concomitant]
     Active Substance: OMEPRAZOLE
     Dosage: WHEN NEEDED
  10. HYDRALAZINE [Concomitant]
     Active Substance: HYDRALAZINE HYDROCHLORIDE
     Dosage: 1/2 3 TIMES A DAY
  11. LISINOPRIL. [Concomitant]
     Active Substance: LISINOPRIL
  12. SPIRONOLACTONE. [Concomitant]
     Active Substance: SPIRONOLACTONE
  13. METOPROLOL. [Concomitant]
     Active Substance: METOPROLOL

REACTIONS (4)
  - Tongue discomfort [Unknown]
  - Product taste abnormal [Unknown]
  - Feeling jittery [Unknown]
  - Flatulence [Unknown]

NARRATIVE: CASE EVENT DATE: 20181228
